FAERS Safety Report 5133607-7 (Version None)
Quarter: 2006Q4

REPORT INFORMATION
  Report Type: 
  Country: None (occurrence: None)
  Receive Date: 20061024
  Receipt Date: 20060614
  Transmission Date: 20070319
  Serious: No
  Sender: FDA-Public Use
  Company Number: US-AMGEN-US182894

PATIENT
  Age: 49 Year
  Sex: Male

DRUGS (8)
  1. SENSIPAR [Suspect]
     Indication: HYPERPARATHYROIDISM SECONDARY
     Route: 065
     Dates: start: 20050101, end: 20060501
  2. LIPITOR [Concomitant]
     Route: 065
  3. COZAAR [Concomitant]
     Route: 065
  4. METOPROLOL [Concomitant]
     Route: 065
  5. PRILOSEC [Concomitant]
     Route: 065
  6. RENAGEL [Concomitant]
     Route: 065
  7. HYTRIN [Concomitant]
     Route: 065
  8. NEPHRO-VITE [Concomitant]
     Route: 065

REACTIONS (1)
  - HEADACHE [None]
